FAERS Safety Report 16735243 (Version 1)
Quarter: 2019Q3

REPORT INFORMATION
  Report Type: Spontaneous
  Country: DE (occurrence: DE)
  Receive Date: 20190823
  Receipt Date: 20190823
  Transmission Date: 20191005
  Serious: Yes (Hospitalization)
  Sender: FDA-Public Use
  Company Number: DE-PFIZER INC-2019360042

PATIENT
  Age: 80 Year
  Sex: Female

DRUGS (18)
  1. PANTOPRAZOL [PANTOPRAZOLE] [Concomitant]
     Active Substance: PANTOPRAZOLE
     Dosage: 40 MG, 1X/DAY, 1-0-0-0
  2. SERTRALINE HCL [Suspect]
     Active Substance: SERTRALINE HYDROCHLORIDE
     Dosage: 50 MG, 1X/DAY, 1-0-0-0
  3. ROPINIROL [ROPINIROLE] [Concomitant]
     Dosage: 8 MG, 1X/DAY, 1-0-0-0
  4. COLECALCIFEROL [Concomitant]
     Active Substance: CHOLECALCIFEROL
     Dosage: 1000 IU, 1X/DAY, 1-0-0-0
  5. MACROGOL [Concomitant]
     Active Substance: POLYETHYLENE GLYCOLS
     Dosage: UNK (MG), 1X/DAY 1-0-0-0
  6. NATRIUMCHLORIDE [Concomitant]
     Active Substance: SODIUM CHLORIDE
     Dosage: 1000 MG, 3X/DAY, 1-1-1-0
  7. ROPINIROL [ROPINIROLE] [Concomitant]
     Dosage: 4 MG, 1X/DAY,  0-0-1-0
  8. IBUPROFEN. [Suspect]
     Active Substance: IBUPROFEN
     Dosage: 400 MG, 1X/DAY, 1-0-0-0
  9. LEVODOPA/CARBIDOPA [Concomitant]
     Active Substance: CARBIDOPA\LEVODOPA
     Dosage: 4 DF, DAILY
  10. LEVOTHYROXINE SODIUM. [Concomitant]
     Active Substance: LEVOTHYROXINE SODIUM
     Dosage: 75 UG, 1X/DAY, 1-0-0-0
  11. ROTIGOTINE [Concomitant]
     Active Substance: ROTIGOTINE
     Dosage: 2 MG, DAILY, 1-0-0-0, AFTER ONE WEEK 2-0-0-0
     Route: 062
  12. RAMIPRIL. [Concomitant]
     Active Substance: RAMIPRIL
     Dosage: 2.5 MG, 2X/DAY, 1-0-1-0
  13. LEVODOPA/CARBIDOPA [Concomitant]
     Active Substance: CARBIDOPA\LEVODOPA
     Dosage: 1 DF, 1X/DAY
  14. OPICAPONE [Concomitant]
     Active Substance: OPICAPONE
     Dosage: 50 MG, 1X/DAY, 0-0-0-1
     Dates: end: 20180315
  15. ROPINIROL [ROPINIROLE] [Concomitant]
     Dosage: 12 MG, 1X/DAY, 1-0-0.5-0
  16. LEVODOPA/BENSERAZIDE [Concomitant]
     Active Substance: BENSERAZIDE\LEVODOPA
     Dosage: 1 DF, 1X/DAY, 1-0-0-0
  17. LEVODOPA/BENSERAZIDE [Concomitant]
     Active Substance: BENSERAZIDE\LEVODOPA
     Dosage: 1 DF, 3X/DAY, 1-1-1-0
  18. LEVODOPA/BENSERAZIDE [Concomitant]
     Active Substance: BENSERAZIDE\LEVODOPA
     Dosage: 1 DF, 1X/DAY, 1-0-0-0

REACTIONS (3)
  - Product prescribing error [Unknown]
  - Haematochezia [Unknown]
  - Abdominal pain lower [Unknown]
